FAERS Safety Report 8170510-2 (Version None)
Quarter: 2012Q1

REPORT INFORMATION
  Report Type: 
  Country: None (occurrence: None)
  Receive Date: 20120106
  Receipt Date: 20110302
  Transmission Date: 20120608
  Serious: Yes (Hospitalization)
  Sender: FDA-Public Use
  Company Number: US-005962

PATIENT
  Age: 85 Year
  Sex: Female

DRUGS (1)
  1. MULTIHANCE [Suspect]
     Indication: NUCLEAR MAGNETIC RESONANCE IMAGING BRAIN
     Dosage: ONCE INTRAVENOUS (NOT OTHERWISE SPECIFIED
     Route: 042
     Dates: start: 20110224, end: 20110224

REACTIONS (3)
  - CHEST PAIN [None]
  - SYNCOPE [None]
  - NAUSEA [None]
